FAERS Safety Report 8419007-2 (Version None)
Quarter: 2012Q2

REPORT INFORMATION
  Report Type: 
  Country: None (occurrence: None)
  Receive Date: 20120607
  Receipt Date: 20120530
  Transmission Date: 20120825
  Serious: Yes (Hospitalization)
  Sender: FDA-Public Use
  Company Number: FR-UCBSA-058622

PATIENT
  Age: 55 Year
  Sex: Female

DRUGS (6)
  1. NEXIUM [Suspect]
     Dosage: UNKNOWN DOSE
     Dates: start: 20120421, end: 20120425
  2. TIAPRIDAL [Suspect]
     Dosage: UNKNOWN DOSE
     Dates: start: 20120415, end: 20120425
  3. OMNIPAQUE 140 [Suspect]
     Indication: VASOSPASM
     Dosage: UNKNOWN DOSE
     Dates: start: 20120420, end: 20120425
  4. KEPPRA [Suspect]
     Indication: SUBARACHNOID HAEMORRHAGE
     Dosage: UNKNOWN DOSE
     Route: 048
     Dates: start: 20120415, end: 20120425
  5. CRESTOR [Suspect]
     Indication: VASOSPASM
     Dosage: UNKNONW DOSE
     Route: 048
     Dates: start: 20120415, end: 20120425
  6. NOOTROPYL [Concomitant]

REACTIONS (7)
  - EOSINOPHILIA [None]
  - ACUTE GENERALISED EXANTHEMATOUS PUSTULOSIS [None]
  - RASH PUSTULAR [None]
  - CYTOLYTIC HEPATITIS [None]
  - DRUG RASH WITH EOSINOPHILIA AND SYSTEMIC SYMPTOMS [None]
  - FACE OEDEMA [None]
  - MONOCYTOSIS [None]
